FAERS Safety Report 18627377 (Version 2)
Quarter: 2020Q4

REPORT INFORMATION
  Report Type: Spontaneous
  Country: US (occurrence: US)
  Receive Date: 20201217
  Receipt Date: 20201229
  Transmission Date: 20210114
  Serious: Yes (Death)
  Sender: FDA-Public Use
  Company Number: US-PFIZER INC-2020491181

PATIENT
  Sex: Male

DRUGS (1)
  1. BENZATHINE BENZYLPENICILLIN [Suspect]
     Active Substance: PENICILLIN G BENZATHINE
     Indication: CONGENITAL SYPHILIS
     Dosage: 1.5 MIU
     Route: 042
     Dates: start: 199610

REACTIONS (6)
  - Product dispensing error [Fatal]
  - Product label issue [Fatal]
  - Incorrect route of product administration [Fatal]
  - Product label confusion [Fatal]
  - Death neonatal [Fatal]
  - Accidental overdose [Fatal]

NARRATIVE: CASE EVENT DATE: 199610
